FAERS Safety Report 18430160 (Version 1)
Quarter: 2020Q4

REPORT INFORMATION
  Report Type: Other
  Country: TR (occurrence: TR)
  Receive Date: 20201026
  Receipt Date: 20201026
  Transmission Date: 20210114
  Serious: Yes (Other)
  Sender: FDA-Public Use
  Company Number: TR-ROCHE-2699417

PATIENT

DRUGS (1)
  1. BEVACIZUMAB. [Suspect]
     Active Substance: BEVACIZUMAB
     Indication: OVARIAN CANCER RECURRENT
     Route: 065

REACTIONS (7)
  - Hypertension [Unknown]
  - Cerebral ischaemia [Unknown]
  - Nephrotic syndrome [Unknown]
  - Intestinal perforation [Unknown]
  - Myocardial ischaemia [Unknown]
  - Osteonecrosis [Unknown]
  - Pulmonary embolism [Unknown]
